FAERS Safety Report 9360759 (Version 1)
Quarter: 2013Q2

REPORT INFORMATION
  Report Type: Spontaneous
  Country: US (occurrence: None)
  Receive Date: 20130620
  Receipt Date: 20130620
  Transmission Date: 20140414
  Serious: Yes (Hospitalization)
  Sender: FDA-Public Use
  Company Number: None

PATIENT
  Age: 61 Year
  Sex: Male
  Weight: 77.11 kg

DRUGS (10)
  1. ERLOTINIB [Suspect]
     Indication: NON-SMALL CELL LUNG CANCER
     Route: 048
     Dates: start: 20130423, end: 20130523
  2. MLN8237 [Suspect]
     Indication: NON-SMALL CELL LUNG CANCER
     Dosage: 50MG BID PO DAYS 1-7 Q21
     Route: 048
     Dates: start: 20130423, end: 20130520
  3. OXYCONTIN 30MG [Concomitant]
  4. OXYCODONE 5MG [Concomitant]
  5. LYRICA 50MG TO 100 MGS DAILY EVERGREEN PHARMACY [Concomitant]
  6. ERYTHROMYCIN OINTMENT [Concomitant]
  7. LUMIGAN [Concomitant]
  8. AZOPT [Concomitant]
  9. IMMODIUM [Concomitant]
  10. HYDROCORTISONE CREAM [Concomitant]

REACTIONS (2)
  - Febrile neutropenia [None]
  - Diarrhoea [None]
